FAERS Safety Report 4361272-5 (Version None)
Quarter: 2004Q2

REPORT INFORMATION
  Report Type: 
  Country: None (occurrence: None)
  Receive Date: 20040520
  Receipt Date: 20040519
  Transmission Date: 20050107
  Serious: Yes (Hospitalization)
  Sender: FDA-Public Use
  Company Number: US-GLAXOSMITHKLINE-A0511475A

PATIENT
  Age: 44 Year
  Sex: Female

DRUGS (3)
  1. WELLBUTRIN [Suspect]
     Indication: DEPRESSION
     Dosage: 6G SINGLE DOSE
     Route: 048
     Dates: start: 20040401
  2. KLONOPIN [Suspect]
     Dosage: 5MG SINGLE DOSE
  3. LITHIUM CARBONATE [Concomitant]

REACTIONS (6)
  - DIARRHOEA [None]
  - DIZZINESS [None]
  - DRUG SCREEN POSITIVE [None]
  - MUSCLE SPASMS [None]
  - OVERDOSE [None]
  - VOMITING [None]
